FAERS Safety Report 4471092-9 (Version None)
Quarter: 2004Q4

REPORT INFORMATION
  Report Type: 
  Country: None (occurrence: None)
  Receive Date: 20041011
  Receipt Date: 20040929
  Transmission Date: 20050328
  Serious: Yes (Hospitalization)
  Sender: FDA-Public Use
  Company Number: PHBS2004JP13023

PATIENT
  Age: 10 Year
  Sex: Female

DRUGS (5)
  1. SIMULECT [Suspect]
     Indication: RENAL TRANSPLANT
     Dosage: 20 MG, ONCE/SINGLE
     Route: 042
     Dates: start: 20040323, end: 20040323
  2. SIMULECT [Suspect]
     Dosage: 20 MG, ONCE/SINGLE
     Route: 042
     Dates: start: 20040327, end: 20040327
  3. TACROLIMUS [Suspect]
     Indication: RENAL TRANSPLANT
     Dosage: 0.24 MG/DAY
     Route: 042
     Dates: start: 20040323, end: 20040324
  4. CELLCEPT [Concomitant]
     Indication: RENAL TRANSPLANT
     Dosage: 500 MG/DAY
     Route: 048
     Dates: start: 20040323, end: 20040401
  5. SOLU-MEDROL [Concomitant]
     Indication: RENAL TRANSPLANT
     Dosage: 400 MG/DAY
     Route: 042
     Dates: start: 20040323, end: 20040401

REACTIONS (2)
  - CLONIC CONVULSION [None]
  - LEUKOENCEPHALOPATHY [None]
